FAERS Safety Report 5428167-7 (Version None)
Quarter: 2007Q3

REPORT INFORMATION
  Report Type: 
  Country: None (occurrence: None)
  Receive Date: 20070828
  Receipt Date: 20070820
  Transmission Date: 20080115
  Serious: Yes (Hospitalization, Other)
  Sender: FDA-Public Use
  Company Number: US-PFIZER INC-2007068977

PATIENT
  Sex: Male

DRUGS (2)
  1. BEXTRA [Suspect]
     Indication: GOUT
  2. VIOXX [Suspect]

REACTIONS (4)
  - AORTIC VALVE REPLACEMENT [None]
  - CARDIAC FAILURE [None]
  - HYPERTENSION [None]
  - PULMONARY EMBOLISM [None]
